FAERS Safety Report 5591052-4 (Version None)
Quarter: 2008Q1

REPORT INFORMATION
  Report Type: 
  Country: None (occurrence: None)
  Receive Date: 20080110
  Receipt Date: 20080102
  Transmission Date: 20080703
  Serious: Yes (Other)
  Sender: FDA-Public Use
  Company Number: 028-20785-08010196

PATIENT
  Age: 60 Year
  Sex: Male

DRUGS (3)
  1. THALIDOMID [Suspect]
     Indication: MULTIPLE MYELOMA
     Dosage: 100-200MG, DAILY, ORAL
     Route: 048
     Dates: start: 20020401
  2. DECADRON [Suspect]
     Indication: MULTIPLE MYELOMA
     Dosage: 40 MG, DAILY EVERY 2 WEEKS,
     Dates: start: 20020401
  3. BISPHOSPHONATES              (BISPHOSPHONATES) [Suspect]
     Indication: MULTIPLE MYELOMA

REACTIONS (4)
  - MOUTH ULCERATION [None]
  - OSTEONECROSIS [None]
  - POOR PERSONAL HYGIENE [None]
  - TOOTH EXTRACTION [None]
